FAERS Safety Report 5275978-7 (Version None)
Quarter: 2007Q1

REPORT INFORMATION
  Report Type: 
  Country: None (occurrence: None)
  Receive Date: 20070326
  Receipt Date: 20070315
  Transmission Date: 20070707
  Serious: Yes (Hospitalization)
  Sender: FDA-Public Use
  Company Number: US-JNJFOC-20070304007

PATIENT
  Sex: Female

DRUGS (12)
  1. INFLIXIMAB [Suspect]
     Indication: RHEUMATOID ARTHRITIS
     Dosage: Q8WKS
     Route: 042
  2. METHOTREXATE [Concomitant]
  3. ARTHROTEC [Concomitant]
  4. MIACALCIN [Concomitant]
  5. FOSAMAX [Concomitant]
  6. CALCIUM [Concomitant]
  7. MULTI-VITAMIN [Concomitant]
  8. TRAMADOL HCL [Concomitant]
  9. FOLIC ACID [Concomitant]
  10. ESTROGENS SOL/INJ [Concomitant]
  11. ALTACE [Concomitant]
  12. PROVERA [Concomitant]

REACTIONS (5)
  - FRACTURED SACRUM [None]
  - OSTEOMYELITIS [None]
  - PNEUMONIA PRIMARY ATYPICAL [None]
  - SEPSIS [None]
  - SEPTIC EMBOLUS [None]
